FAERS Safety Report 24450597 (Version 1)
Quarter: 2024Q4

REPORT INFORMATION
  Report Type: Spontaneous
  Country: GB (occurrence: GB)
  Receive Date: 20241017
  Receipt Date: 20241017
  Transmission Date: 20250114
  Serious: Yes (Hospitalization)
  Sender: SANDOZ
  Company Number: GB-002147023-PHHO2017GB011193

PATIENT
  Age: 81 Year
  Sex: Male
  Weight: 69 kg

DRUGS (22)
  1. CALCIUM CARBONATE\CHOLECALCIFEROL [Suspect]
     Active Substance: CALCIUM CARBONATE\CHOLECALCIFEROL
     Indication: Vitamin D deficiency
     Dosage: 1500 IU, QD
     Route: 065
     Dates: start: 20131201
  2. ALENDRONIC ACID [Suspect]
     Active Substance: ALENDRONIC ACID
     Indication: Osteopetrosis
     Dosage: 70 MG, QW
     Route: 048
     Dates: start: 20151201
  3. CHLORAMBUCIL [Suspect]
     Active Substance: CHLORAMBUCIL
     Indication: Chronic lymphocytic leukaemia
     Dosage: 126 MG, UNK
     Route: 048
     Dates: start: 20170628, end: 20170704
  4. COCODAMOL [Suspect]
     Active Substance: ACETAMINOPHEN\CODEINE PHOSPHATE
     Indication: Pain
     Dosage: 30 MG, QDS
     Route: 065
     Dates: start: 20020319, end: 20170714
  5. GLICLAZIDE [Suspect]
     Active Substance: GLICLAZIDE
     Indication: Diabetes mellitus
     Dosage: 80 MG, QD
     Route: 048
     Dates: start: 20170117
  6. LISINOPRIL [Suspect]
     Active Substance: LISINOPRIL
     Indication: Hypertension
     Dosage: 20 MG, BID
     Route: 048
     Dates: start: 20130301
  7. METFORMIN [Suspect]
     Active Substance: METFORMIN HYDROCHLORIDE
     Indication: Diabetes mellitus
     Dosage: 500 MG, BID
     Route: 048
     Dates: start: 20170117
  8. OFATUMUMAB [Suspect]
     Active Substance: OFATUMUMAB
     Indication: Chronic lymphocytic leukaemia
     Dosage: 1300 MG, UNK
     Route: 042
     Dates: start: 20170628, end: 20170705
  9. ONDANSETRON HYDROCHLORIDE [Suspect]
     Active Substance: ONDANSETRON HYDROCHLORIDE
     Indication: Antiemetic supportive care
     Dosage: 8 MG, BID
     Route: 048
  10. ACYCLOVIR [Concomitant]
     Active Substance: ACYCLOVIR
     Indication: Chronic lymphocytic leukaemia
     Dosage: 400 MG, UNK
     Route: 048
     Dates: start: 20170628, end: 20170628
  11. ALLOPURINOL [Concomitant]
     Active Substance: ALLOPURINOL
     Indication: Chronic lymphocytic leukaemia
     Dosage: 300 MG, UNK
     Route: 048
     Dates: start: 20170628, end: 20170628
  12. BISACODYL [Concomitant]
     Active Substance: BISACODYL
     Indication: Laxative supportive care
     Dosage: 5 MG, BID
     Route: 048
     Dates: start: 20161101
  13. CHLORPHENIRAMINE [Concomitant]
     Active Substance: CHLORPHENIRAMINE
     Indication: Chronic lymphocytic leukaemia
     Dosage: 20 MG, UNK
     Route: 042
     Dates: start: 20170628, end: 20170705
  14. COTRIMOXAZOLE [Concomitant]
     Active Substance: SULFAMETHOXAZOLE\TRIMETHOPRIM
     Indication: Chronic lymphocytic leukaemia
     Dosage: 480 MG, UNK
     Route: 048
     Dates: start: 20170628, end: 20170628
  15. HYDROCORTISONE [Concomitant]
     Active Substance: HYDROCORTISONE
     Indication: Chronic lymphocytic leukaemia
     Dosage: 200 MG, UNK
     Route: 042
     Dates: start: 20170628, end: 20170705
  16. LACTULOSE [Concomitant]
     Active Substance: LACTULOSE
     Indication: Laxative supportive care
     Dosage: 5 ML, QD
     Route: 048
     Dates: start: 20170718, end: 20170724
  17. LANTUS [Concomitant]
     Active Substance: INSULIN GLARGINE
     Indication: Diabetes mellitus
     Dosage: 40 IU, QD
     Route: 058
     Dates: start: 20170718
  18. METOCLOPRAMIDE [Concomitant]
     Active Substance: METOCLOPRAMIDE
     Indication: Chronic lymphocytic leukaemia
     Dosage: 10 MG, UNK
     Route: 048
     Dates: start: 20170628, end: 20170628
  19. NOVORAPID [Concomitant]
     Active Substance: INSULIN ASPART
     Indication: Diabetes mellitus
     Dosage: 4 IU, QD
     Route: 058
     Dates: start: 20170705
  20. ACETAMINOPHEN [Concomitant]
     Active Substance: ACETAMINOPHEN
     Indication: Chronic lymphocytic leukaemia
     Dosage: 2000 MG, UNK
     Route: 048
     Dates: start: 20170628, end: 20170705
  21. PREDNISONE [Concomitant]
     Active Substance: PREDNISONE
     Indication: Prophylaxis
     Dosage: 60 MG, QD
     Route: 048
     Dates: start: 20170704, end: 20170706
  22. SIMVASTATIN [Concomitant]
     Active Substance: SIMVASTATIN
     Indication: Hypercholesterolaemia
     Dosage: 40 MG, QD
     Route: 048
     Dates: start: 20080401, end: 20170706

REACTIONS (2)
  - Urinary retention [Recovered/Resolved]
  - Constipation [Recovered/Resolved]

NARRATIVE: CASE EVENT DATE: 20170711
